FAERS Safety Report 10180604 (Version 1)
Quarter: 2014Q2

REPORT INFORMATION
  Report Type: Spontaneous
  Country: US (occurrence: US)
  Receive Date: 20140519
  Receipt Date: 20140519
  Transmission Date: 20141212
  Serious: No
  Sender: FDA-Public Use
  Company Number: US-AMGEN INC.-USASP2014023414

PATIENT
  Age: 67 Year
  Sex: Female

DRUGS (4)
  1. PROLIA [Suspect]
     Indication: OSTEOPOROSIS POSTMENOPAUSAL
     Dosage: UNK
     Route: 065
     Dates: start: 201311
  2. FLU [Concomitant]
  3. VITAMIN D                          /00107901/ [Concomitant]
  4. CALCIUM [Concomitant]

REACTIONS (12)
  - Dysstasia [Unknown]
  - Diarrhoea [Not Recovered/Not Resolved]
  - Influenza [Unknown]
  - Bedridden [Unknown]
  - Asthenia [Unknown]
  - Insomnia [Unknown]
  - Bone pain [Not Recovered/Not Resolved]
  - Back pain [Not Recovered/Not Resolved]
  - Myalgia [Not Recovered/Not Resolved]
  - Arthralgia [Not Recovered/Not Resolved]
  - Musculoskeletal pain [Not Recovered/Not Resolved]
  - Pain in extremity [Not Recovered/Not Resolved]
